FAERS Safety Report 18855435 (Version 2)
Quarter: 2021Q1

REPORT INFORMATION
  Report Type: Spontaneous
  Country: LT (occurrence: LT)
  Receive Date: 20210205
  Receipt Date: 20210211
  Transmission Date: 20210420
  Serious: Yes (Life-Threatening, Hospitalization)
  Sender: FDA-Public Use
  Company Number: LT-PFIZER INC-2021096597

PATIENT
  Age: 11 Year
  Sex: Male

DRUGS (8)
  1. METHYLPREDNISOLONE SODIUM SUCCINATE. [Suspect]
     Active Substance: METHYLPREDNISOLONE SODIUM SUCCINATE
     Indication: IDIOPATHIC GENERALISED EPILEPSY
     Dosage: 250 MG, FOR 3 DAYS EVERY MONTH FOR 6 MONTHS
     Route: 042
  2. VALPROATE [Suspect]
     Active Substance: VALPROIC ACID
     Indication: IDIOPATHIC GENERALISED EPILEPSY
     Dosage: UNK
  3. NITRAZEPAM [Suspect]
     Active Substance: NITRAZEPAM
     Indication: IDIOPATHIC GENERALISED EPILEPSY
     Dosage: UNK
  4. METHYLPREDNISOLONE SODIUM SUCCINATE. [Suspect]
     Active Substance: METHYLPREDNISOLONE SODIUM SUCCINATE
     Dosage: 250 MG, SINGLE, EVERY MONTH
     Route: 042
  5. METHYLPREDNISOLONE SODIUM SUCCINATE. [Suspect]
     Active Substance: METHYLPREDNISOLONE SODIUM SUCCINATE
     Dosage: 250 MG, FOR 3 DAYS EVETR MONTH FOR 3 MONTHS
     Route: 042
  6. LAMOTRIGINE. [Suspect]
     Active Substance: LAMOTRIGINE
     Indication: IDIOPATHIC GENERALISED EPILEPSY
     Dosage: UNK
  7. TOPIRAMATE. [Suspect]
     Active Substance: TOPIRAMATE
     Indication: IDIOPATHIC GENERALISED EPILEPSY
     Dosage: UNK
  8. NITRAZEPAM [Suspect]
     Active Substance: NITRAZEPAM
     Dosage: UNK

REACTIONS (7)
  - Rash [Unknown]
  - Partial seizures [Unknown]
  - Therapeutic product effect incomplete [Unknown]
  - Fatigue [Unknown]
  - Drug ineffective [Unknown]
  - Decreased appetite [Unknown]
  - Dehydration [Unknown]
